FAERS Safety Report 12298133 (Version 1)
Quarter: 2016Q2

REPORT INFORMATION
  Report Type: Spontaneous
  Country: US (occurrence: US)
  Receive Date: 20160423
  Receipt Date: 20160423
  Transmission Date: 20160815
  Serious: No
  Sender: FDA-Public Use
  Company Number: US-ACCORD-030433

PATIENT
  Age: 37 Year
  Sex: Male

DRUGS (2)
  1. ETOPOSIDE. [Suspect]
     Active Substance: ETOPOSIDE
     Indication: THYMOMA MALIGNANT RECURRENT
     Dosage: FIRST CYCLE : 3 DAY ETOPOSIDE
     Dates: start: 20110124
  2. CISPLATIN. [Suspect]
     Active Substance: CISPLATIN
     Indication: THYMOMA MALIGNANT RECURRENT

REACTIONS (5)
  - Swelling [Unknown]
  - Trismus [Unknown]
  - Adverse event [Unknown]
  - Candida infection [Unknown]
  - Off label use [Unknown]
